FAERS Safety Report 7312275-X (Version None)
Quarter: 2011Q1

REPORT INFORMATION
  Report Type: 
  Country: None (occurrence: None)
  Receive Date: 20110224
  Receipt Date: 20110221
  Transmission Date: 20110831
  Serious: Yes (Hospitalization, Congenital Anomaly, Other)
  Sender: FDA-Public Use
  Company Number: B0675502B

PATIENT

DRUGS (8)
  1. FOLIC ACID [Concomitant]
     Route: 064
  2. ARIPIPRAZOLE [Concomitant]
     Route: 064
  3. PROPRANOLOL HYDROCHLORIDE [Concomitant]
  4. LANSOPRAZOLE [Concomitant]
     Route: 064
  5. ISPAGHULA HUSK [Concomitant]
     Route: 064
  6. SERTRALINE HYDROCHLORIDE [Concomitant]
     Route: 064
  7. DICLOFENAC SODIUM [Concomitant]
     Route: 064
  8. LAMOTRIGINE [Suspect]
     Route: 064
     Dates: start: 20080319

REACTIONS (2)
  - VENTRICULAR SEPTAL DEFECT [None]
  - DRUG EXPOSURE DURING PREGNANCY [None]
